FAERS Safety Report 5819123-5 (Version None)
Quarter: 2008Q3

REPORT INFORMATION
  Report Type: 
  Country: None (occurrence: None)
  Receive Date: 20080723
  Receipt Date: 20080711
  Transmission Date: 20090109
  Serious: Yes (Other)
  Sender: FDA-Public Use
  Company Number: FR-JNJFOC-20080705095

PATIENT
  Age: 55 Year
  Sex: Female

DRUGS (1)
  1. IXPRIM [Suspect]
     Indication: ARTHRALGIA
     Dosage: 37.5 MG AND 325 MG RESPECTIVELY
     Route: 048

REACTIONS (1)
  - RENAL FAILURE ACUTE [None]
